FAERS Safety Report 9262561 (Version 1)
Quarter: 2013Q2

REPORT INFORMATION
  Report Type: Spontaneous
  Country: US (occurrence: None)
  Receive Date: 20130426
  Receipt Date: 20130426
  Transmission Date: 20140414
  Serious: Yes (Other)
  Sender: FDA-Public Use
  Company Number: None

PATIENT
  Age: 58 Year
  Sex: Female
  Weight: 49.9 kg

DRUGS (2)
  1. SYNTHROID [Suspect]
     Indication: THYROID HORMONE REPLACEMENT THERAPY
     Dosage: 88/100MCG, ALTERNATE,1XAM, PO.
     Route: 048
     Dates: start: 2009, end: 2013
  2. SYNTHROID [Suspect]
     Dosage: 88/100MCG, ALTERNATE,1XAM, PO.
     Route: 048
     Dates: start: 2009, end: 2013

REACTIONS (6)
  - Thinking abnormal [None]
  - Derealisation [None]
  - Cognitive disorder [None]
  - Feeling abnormal [None]
  - Depressed level of consciousness [None]
  - Impaired work ability [None]
